FAERS Safety Report 7857307-5 (Version None)
Quarter: 2011Q4

REPORT INFORMATION
  Report Type: 
  Country: None (occurrence: None)
  Receive Date: 20111027
  Receipt Date: 20111019
  Transmission Date: 20120403
  Serious: No
  Sender: FDA-Public Use
  Company Number: US-BIOGENIDEC-2011BI039367

PATIENT
  Sex: Female

DRUGS (4)
  1. SYNTHROID [Concomitant]
     Indication: HYPOTHYROIDISM
     Dates: start: 19720101
  2. TYSABRI [Suspect]
     Indication: MULTIPLE SCLEROSIS
     Route: 042
     Dates: start: 20111011
  3. CLARITIN [Concomitant]
     Indication: PREMEDICATION
     Dates: start: 20111001
  4. TYLENOL-500 [Concomitant]
     Indication: PREMEDICATION
     Dates: start: 20111001

REACTIONS (14)
  - BALANCE DISORDER [None]
  - CATHETER SITE SWELLING [None]
  - DYSGEUSIA [None]
  - APHASIA [None]
  - PARAESTHESIA [None]
  - DYSPNOEA [None]
  - HEART RATE INCREASED [None]
  - MUSCLE SPASMS [None]
  - CATHETER SITE OEDEMA [None]
  - NAUSEA [None]
  - HYPERTENSION [None]
  - BLOOD PRESSURE INCREASED [None]
  - TREMOR [None]
  - CATHETER SITE ERYTHEMA [None]
